FAERS Safety Report 21183146 (Version 2)
Quarter: 2022Q3

REPORT INFORMATION
  Report Type: Spontaneous
  Country: US (occurrence: US)
  Receive Date: 20220808
  Receipt Date: 20220824
  Transmission Date: 20221027
  Serious: No
  Sender: FDA-Public Use
  Company Number: US-drreddys-SPO/USA/22/0152856

PATIENT
  Age: 28 Year
  Sex: Female

DRUGS (2)
  1. ACCUTANE [Suspect]
     Active Substance: ISOTRETINOIN
     Indication: Acne
     Dosage: RMA ISSUE DATE:  20 APRIL 2022 03:23:10 PM AND 23 MAY 2022 06:58:20 PM
  2. ACCUTANE [Suspect]
     Active Substance: ISOTRETINOIN
     Dosage: RMA ISSUE DATE: 24 JANUARY 2022 01:05:50 PM, 21 FEBRUARY 2022 05:56:47 PM AND 22 MARCH 2022 11:16:55

REACTIONS (3)
  - Acne [Unknown]
  - Drug ineffective [Unknown]
  - Product quality issue [Unknown]
